FAERS Safety Report 24721978 (Version 1)
Quarter: 2024Q4

REPORT INFORMATION
  Report Type: Spontaneous
  Country: BH (occurrence: BH)
  Receive Date: 20241211
  Receipt Date: 20241211
  Transmission Date: 20250114
  Serious: Yes (Life-Threatening, Other)
  Sender: PFIZER
  Company Number: BH-PFIZER INC-PV202400159844

PATIENT
  Age: 2 Year
  Sex: Male

DRUGS (1)
  1. HYDROCORTISONE SODIUM SUCCINATE [Suspect]
     Active Substance: HYDROCORTISONE SODIUM SUCCINATE
     Indication: Asthma
     Dosage: UNK
     Route: 042

REACTIONS (1)
  - Drug ineffective [Unknown]
